FAERS Safety Report 19383374 (Version 1)
Quarter: 2021Q2

REPORT INFORMATION
  Report Type: Spontaneous
  Country: FR (occurrence: FR)
  Receive Date: 20210607
  Receipt Date: 20210607
  Transmission Date: 20210717
  Serious: Yes (Hospitalization)
  Sender: FDA-Public Use
  Company Number: FR-MYLANLABS-2021M1032509

PATIENT
  Age: 60 Year
  Sex: Female
  Weight: 52.2 kg

DRUGS (6)
  1. QUETIAPINE. [Suspect]
     Active Substance: QUETIAPINE
     Indication: BIPOLAR DISORDER
     Dosage: 600 MILLIGRAM, QD
     Route: 048
     Dates: start: 20200721, end: 20201217
  2. RAMIPRIL. [Suspect]
     Active Substance: RAMIPRIL
     Indication: HYPERTENSION
     Dosage: 10 MILLIGRAM, QD
     Route: 048
     Dates: end: 20201207
  3. SERESTA [Suspect]
     Active Substance: OXAZEPAM
     Indication: DEPRESSION
     Dosage: 3 DOSAGE FORM, QD
     Route: 048
     Dates: start: 20200616
  4. ZOPICLONE ARROW [Suspect]
     Active Substance: ZOPICLONE
     Indication: INSOMNIA
     Dosage: 1 DOSAGE FORM, QD
     Route: 048
     Dates: start: 20200507
  5. KARDEGIC [Suspect]
     Active Substance: ASPIRIN DL-LYSINE
     Indication: PRODUCT USED FOR UNKNOWN INDICATION
     Dosage: 1 DOSAGE FORM, QD
  6. SULFARLEM S [Suspect]
     Active Substance: ANETHOLTRITHION
     Indication: BIPOLAR DISORDER
     Dosage: 3 DOSAGE FORM, QD
     Route: 048
     Dates: start: 20200804, end: 20201215

REACTIONS (2)
  - Anaemia [Not Recovered/Not Resolved]
  - Eosinophilia [Not Recovered/Not Resolved]

NARRATIVE: CASE EVENT DATE: 20201008
